FAERS Safety Report 7945171-5 (Version None)
Quarter: 2011Q4

REPORT INFORMATION
  Report Type: 
  Country: None (occurrence: None)
  Receive Date: 20111122
  Receipt Date: 20111115
  Transmission Date: 20120403
  Serious: Yes (Death, Hospitalization, Other)
  Sender: FDA-Public Use
  Company Number: 2008-185204-NL

PATIENT
  Age: 31 Year
  Sex: Female
  Weight: 52.2 kg

DRUGS (4)
  1. NUVARING [Suspect]
     Indication: MENSTRUATION IRREGULAR
     Dosage: 1 DF;VAG
     Route: 067
     Dates: start: 20080122, end: 20080201
  2. NUVARING [Suspect]
     Indication: DYSMENORRHOEA
     Dosage: 1 DF;VAG
     Route: 067
     Dates: start: 20080122, end: 20080201
  3. NUVARING [Suspect]
     Indication: MENORRHAGIA
     Dosage: 1 DF;VAG
     Route: 067
     Dates: start: 20080122, end: 20080201
  4. NUVARING [Suspect]
     Indication: CONTRACEPTION
     Dosage: 1 DF;VAG
     Route: 067
     Dates: start: 20080122, end: 20080201

REACTIONS (33)
  - ATELECTASIS [None]
  - PULMONARY CONGESTION [None]
  - PULMONARY OEDEMA [None]
  - ABDOMINAL PAIN UPPER [None]
  - HIATUS HERNIA [None]
  - PYREXIA [None]
  - POSTOPERATIVE ABSCESS [None]
  - RESPIRATORY FAILURE [None]
  - PULMONARY EMBOLISM [None]
  - HYPERBILIRUBINAEMIA [None]
  - LEUKOCYTOSIS [None]
  - HAEMATOMA INFECTION [None]
  - PLATELET COUNT INCREASED [None]
  - ALTERED STATE OF CONSCIOUSNESS [None]
  - UPPER RESPIRATORY TRACT INFECTION [None]
  - CHOLELITHIASIS [None]
  - RENAL CYST [None]
  - ILEUS [None]
  - GASTROOESOPHAGEAL REFLUX DISEASE [None]
  - COUGH [None]
  - SICKLE CELL ANAEMIA WITH CRISIS [None]
  - CARDIOMEGALY [None]
  - PNEUMONIA [None]
  - LUNG INFILTRATION [None]
  - PLEURAL EFFUSION [None]
  - CHOLECYSTITIS ACUTE [None]
  - PULMONARY VASCULAR DISORDER [None]
  - POST PROCEDURAL HAEMATOMA [None]
  - HEPATOMEGALY [None]
  - LUNG CONSOLIDATION [None]
  - DUODENAL ULCER [None]
  - SEPSIS [None]
  - HAEMOLYTIC TRANSFUSION REACTION [None]
